FAERS Safety Report 15770355 (Version 1)
Quarter: 2018Q4

REPORT INFORMATION
  Report Type: Report from Study
  Country: GB (occurrence: GB)
  Receive Date: 20181228
  Receipt Date: 20181228
  Transmission Date: 20190205
  Serious: Yes (Hospitalization, Disabling)
  Sender: FDA-Public Use
  Company Number: GB-REGENERON PHARMACEUTICALS, INC.-2018-49705

PATIENT

DRUGS (4)
  1. EYLEA [Suspect]
     Active Substance: AFLIBERCEPT
     Indication: DIABETIC RETINAL OEDEMA
     Dosage: UNK
     Route: 031
  2. LEVOFLOXACIN. [Concomitant]
     Active Substance: LEVOFLOXACIN
     Indication: PRODUCT USED FOR UNKNOWN INDICATION
     Dosage: EYE DROPS PRE INJECTION
     Route: 047
  3. IODINE. [Concomitant]
     Active Substance: IODINE
     Indication: INFECTION PROPHYLAXIS
     Route: 061
  4. EYLEA [Suspect]
     Active Substance: AFLIBERCEPT
     Dosage: THIRD INJECTION, MOST RECENT INJECTION PRIOR TO THE EVENT, ONCE
     Route: 031
     Dates: start: 20170111, end: 20170111

REACTIONS (2)
  - Blindness [Unknown]
  - Endophthalmitis [Recovered/Resolved with Sequelae]

NARRATIVE: CASE EVENT DATE: 20170111
